FAERS Safety Report 17758232 (Version 1)
Quarter: 2020Q2

REPORT INFORMATION
  Report Type: Spontaneous
  Country: US (occurrence: US)
  Receive Date: 20200507
  Receipt Date: 20200507
  Transmission Date: 20200714
  Serious: Yes (Hospitalization)
  Sender: FDA-Public Use
  Company Number: US-TEVA-2020-US-1231516

PATIENT
  Age: 35 Year
  Sex: Male
  Weight: 62 kg

DRUGS (8)
  1. SUMATRIPTAN. [Suspect]
     Active Substance: SUMATRIPTAN
     Indication: MIGRAINE
     Dosage: INTERVAL: AS NEEDED
     Route: 065
  2. BLACK SEEDS (NIGELLA SATIVA) [Suspect]
     Active Substance: DIETARY SUPPLEMENT\HERBALS
     Indication: HEPATIC FUNCTION ABNORMAL
  3. BLACK SEEDS (NIGELLA SATIVA) [Suspect]
     Active Substance: DIETARY SUPPLEMENT\HERBALS
     Indication: HEADACHE
     Dosage: FORMULATION: OIL
     Route: 048
  4. GABAPENTIN. [Concomitant]
     Active Substance: GABAPENTIN
     Indication: ABDOMINAL PAIN
     Dosage: 900 MILLIGRAM DAILY;
     Route: 065
  5. PANTOPRAZOLE [Suspect]
     Active Substance: PANTOPRAZOLE
     Indication: GASTROOESOPHAGEAL REFLUX DISEASE
     Dosage: 40 MILLIGRAM DAILY;
     Route: 065
  6. OXYCODONE [Suspect]
     Active Substance: OXYCODONE
     Indication: ABDOMINAL PAIN
     Dosage: 20 MILLIGRAM DAILY; AS NEEDED
     Route: 065
  7. FENTANYL. [Suspect]
     Active Substance: FENTANYL
     Indication: ANAESTHESIA
     Route: 042
  8. PROPOFOL. [Concomitant]
     Active Substance: PROPOFOL
     Indication: ANAESTHESIA
     Route: 041

REACTIONS (1)
  - Serotonin syndrome [Recovered/Resolved]
